FAERS Safety Report 6150201-X (Version None)
Quarter: 2009Q2

REPORT INFORMATION
  Report Type: 
  Country: None (occurrence: None)
  Receive Date: 20090409
  Receipt Date: 20090331
  Transmission Date: 20091009
  Serious: Yes (Hospitalization)
  Sender: FDA-Public Use
  Company Number: FR-PFIZER-2009190642

PATIENT

DRUGS (7)
  1. ALDALIX [Suspect]
     Dosage: 1 DF, 1X/DAY
     Route: 048
     Dates: end: 20090227
  2. TRIFLUCAN [Suspect]
     Dosage: 2 DF, 1X/DAY
     Route: 048
     Dates: end: 20090227
  3. DOXORUBICIN HCL [Suspect]
     Dosage: UNK
     Route: 042
     Dates: end: 20090211
  4. ANAFRANIL [Suspect]
     Dosage: 1 DF, 1X/DAY
     Route: 048
     Dates: end: 20090227
  5. PARIET [Concomitant]
     Dosage: 1 DF, 1X/DAY
     Route: 048
     Dates: end: 20090227
  6. INNOHEP [Concomitant]
     Dosage: UNK
     Route: 058
     Dates: end: 20090227
  7. ZOMETA [Concomitant]
     Dosage: UNK
     Route: 042
     Dates: start: 20081230, end: 20081230

REACTIONS (1)
  - PEMPHIGOID [None]
